FAERS Safety Report 6280376-3 (Version None)
Quarter: 2009Q3

REPORT INFORMATION
  Report Type: 
  Country: None (occurrence: None)
  Receive Date: 20090724
  Receipt Date: 20090715
  Transmission Date: 20100115
  Serious: Yes (Death)
  Sender: FDA-Public Use
  Company Number: GB-RANBAXY-2008RR-16903

PATIENT
  Age: 15 Year
  Sex: Female

DRUGS (2)
  1. PARACETAMOL [Suspect]
     Indication: INTENTIONAL DRUG MISUSE
     Dosage: 7.5 G, UNK
  2. ALCOHOL [Suspect]
     Indication: INTENTIONAL DRUG MISUSE

REACTIONS (4)
  - HEPATIC FAILURE [None]
  - HEPATOTOXICITY [None]
  - MULTIPLE DRUG OVERDOSE INTENTIONAL [None]
  - OVERDOSE [None]
